FAERS Safety Report 8507569-6 (Version None)
Quarter: 2012Q3

REPORT INFORMATION
  Report Type: 
  Country: None (occurrence: None)
  Receive Date: 20120713
  Receipt Date: 20120702
  Transmission Date: 20120928
  Serious: Yes (Hospitalization)
  Sender: FDA-Public Use
  Company Number: US-BIOGENIDEC-2012BI016226

PATIENT
  Age: 75 Year
  Sex: Female

DRUGS (3)
  1. ATIVAN [Concomitant]
     Indication: ANXIETY
     Route: 048
  2. AVONEX [Suspect]
     Indication: MULTIPLE SCLEROSIS
     Route: 030
     Dates: start: 20120501
  3. PEPCID [Concomitant]
     Indication: PROPHYLAXIS AGAINST GASTROINTESTINAL ULCER

REACTIONS (2)
  - PULMONARY EMBOLISM [None]
  - RENAL FAILURE ACUTE [None]
